FAERS Safety Report 24406948 (Version 2)
Quarter: 2025Q2

REPORT INFORMATION
  Report Type: Report from Study
  Country: US (occurrence: US)
  Receive Date: 20241007
  Receipt Date: 20250421
  Transmission Date: 20250716
  Serious: No
  Sender: SANOFI AVENTIS
  Company Number: US-SA-2024SA282284

PATIENT
  Age: 53 Year
  Sex: Female
  Weight: 120.45 kg

DRUGS (3)
  1. DUPILUMAB [Suspect]
     Active Substance: DUPILUMAB
     Indication: Eosinophilic oesophagitis
     Dosage: 1 DF, QW
     Route: 058
  2. DUPILUMAB [Suspect]
     Active Substance: DUPILUMAB
     Indication: Dysphagia
  3. DUPILUMAB [Suspect]
     Active Substance: DUPILUMAB
     Indication: Oesophagitis

REACTIONS (3)
  - Oesophagitis [Unknown]
  - Surgery [Unknown]
  - Product use in unapproved indication [Unknown]
